FAERS Safety Report 14080038 (Version 1)
Quarter: 2017Q4

REPORT INFORMATION
  Report Type: Spontaneous
  Country: US (occurrence: US)
  Receive Date: 20171012
  Receipt Date: 20171012
  Transmission Date: 20180321
  Serious: No
  Sender: FDA-Public Use
  Company Number: US-MYLANLABS-2017050007

PATIENT
  Sex: Female

DRUGS (2)
  1. ELESTRIN [Suspect]
     Active Substance: ESTRADIOL
     Dosage: .87 G,QD
     Route: 061
  2. ELESTRIN [Suspect]
     Active Substance: ESTRADIOL
     Indication: MENOPAUSAL SYMPTOMS
     Dosage: 1.74 G,QD
     Route: 061
     Dates: start: 2009

REACTIONS (1)
  - Incorrect dose administered [Not Recovered/Not Resolved]
